FAERS Safety Report 20721964 (Version 1)
Quarter: 2022Q2

REPORT INFORMATION
  Report Type: Spontaneous
  Country: US (occurrence: None)
  Receive Date: 20220418
  Receipt Date: 20220418
  Transmission Date: 20220720
  Serious: No
  Sender: FDA-Public Use
  Company Number: None

PATIENT
  Age: 73 Year
  Sex: Female
  Weight: 105 kg

DRUGS (10)
  1. EVUSHELD [Suspect]
     Active Substance: CILGAVIMAB\TIXAGEVIMAB
     Indication: Chronic lymphocytic leukaemia
     Dates: start: 20220202
  2. IBRUTINIB [Concomitant]
     Dates: start: 20210316
  3. AMLODIPINE [Concomitant]
     Dates: start: 20210809
  4. APIXABAN [Concomitant]
     Dates: start: 20200224
  5. FAMOTIDINE [Concomitant]
     Dates: start: 20200224
  6. FOLIC ACID [Concomitant]
     Dates: start: 20190722
  7. FUROSEMIDE [Concomitant]
     Dates: start: 20210909
  8. MELATONIN [Concomitant]
     Active Substance: MELATONIN
     Dates: start: 20210301
  9. DULERA [Concomitant]
     Dates: start: 20210322
  10. PRAVASTATIN [Concomitant]
     Dates: start: 20210412

REACTIONS (1)
  - Urticaria [None]

NARRATIVE: CASE EVENT DATE: 20220202
